FAERS Safety Report 18189360 (Version 1)
Quarter: 2020Q3

REPORT INFORMATION
  Report Type: Spontaneous
  Country: US (occurrence: US)
  Receive Date: 20200824
  Receipt Date: 20200824
  Transmission Date: 20201103
  Serious: No
  Sender: FDA-Public Use
  Company Number: US-PAIPHARMA-2020-US-011257

PATIENT
  Age: 70 Year
  Sex: Male
  Weight: 63.5 kg

DRUGS (4)
  1. LACTULOSE SOLUTION USP, AF [Suspect]
     Active Substance: LACTULOSE
     Indication: BOWEL MOVEMENT IRREGULARITY
     Dosage: 20ML BY MOUTH ONCE A DAY
     Route: 048
     Dates: start: 20200512
  2. VITAMINS [Concomitant]
     Active Substance: VITAMINS
  3. ZETIA [Concomitant]
     Active Substance: EZETIMIBE
  4. METAMUCIL [Concomitant]
     Active Substance: PLANTAGO SEED

REACTIONS (2)
  - Fatigue [Recovered/Resolved]
  - Headache [Recovered/Resolved]

NARRATIVE: CASE EVENT DATE: 20200515
